FAERS Safety Report 4864607-X (Version None)
Quarter: 2005Q4

REPORT INFORMATION
  Report Type: 
  Country: None (occurrence: None)
  Receive Date: 20051222
  Receipt Date: 20051216
  Transmission Date: 20060501
  Serious: Yes (Hospitalization)
  Sender: FDA-Public Use
  Company Number: FR-ABBOTT-05P-056-0319959-00

PATIENT
  Age: 37 Year
  Sex: Female

DRUGS (6)
  1. DEPAKOTE [Suspect]
     Indication: BIPOLAR I DISORDER
     Route: 048
     Dates: start: 20050629, end: 20050706
  2. ZUCLOPENTHIXOL ACETATE [Suspect]
     Indication: BIPOLAR I DISORDER
     Route: 030
     Dates: start: 20050629, end: 20050629
  3. LORAZEPAM [Suspect]
     Indication: BIPOLAR I DISORDER
     Route: 048
     Dates: start: 20050629, end: 20050706
  4. OLANZAPINE [Suspect]
     Indication: BIPOLAR I DISORDER
     Route: 030
     Dates: start: 20050629, end: 20050629
  5. OLANZAPINE [Suspect]
     Route: 048
     Dates: start: 20050706
  6. FOLIC ACID [Suspect]
     Indication: ANAEMIA
     Route: 048
     Dates: start: 20050706

REACTIONS (1)
  - ABORTION SPONTANEOUS [None]
